FAERS Safety Report 5486171-7 (Version None)
Quarter: 2007Q4

REPORT INFORMATION
  Report Type: 
  Country: None (occurrence: None)
  Receive Date: 20071012
  Receipt Date: 20070926
  Transmission Date: 20080405
  Serious: Yes (Other)
  Sender: FDA-Public Use
  Company Number: A-NJ2007-17858

PATIENT
  Age: 53 Year
  Sex: Male

DRUGS (13)
  1. VENTAVIS [Suspect]
     Indication: PULMONARY HYPERTENSION
     Dosage: 2.5 UG, RESPIRATORY
     Dates: start: 20070906, end: 20070914
  2. PLAVIX [Concomitant]
  3. PROTONIX [Concomitant]
  4. DAPSONE [Concomitant]
  5. ZAROXOLYN [Concomitant]
  6. NEOMYCIN [Concomitant]
  7. FERROUS SULFATE TAB [Concomitant]
  8. CELLCEPT [Concomitant]
  9. SODIUM BICARBONATE IN PLASTIC CONTAINER [Concomitant]
  10. PROGRAF [Concomitant]
  11. LACTULOSE [Concomitant]
  12. BUMEX [Concomitant]
  13. ALLOPURINOL [Concomitant]

REACTIONS (5)
  - ASTHENIA [None]
  - BACK PAIN [None]
  - MUSCULOSKELETAL PAIN [None]
  - NAUSEA [None]
  - VOMITING [None]
